FAERS Safety Report 4383904-8 (Version None)
Quarter: 2004Q2

REPORT INFORMATION
  Report Type: 
  Country: None (occurrence: None)
  Receive Date: 20040621
  Receipt Date: 20040614
  Transmission Date: 20050107
  Serious: Yes (Hospitalization)
  Sender: FDA-Public Use
  Company Number: BDI-006191

PATIENT
  Age: 66 Year
  Sex: Male

DRUGS (2)
  1. ISOVUE-300 [Suspect]
     Indication: EXOSTOSIS
     Dosage: 15 ML ONCE IT
     Route: 037
     Dates: start: 20040604, end: 20040604
  2. ISOVUE-300 [Suspect]
     Indication: SPINAL MYELOGRAM
     Dosage: 15 ML ONCE IT
     Route: 037
     Dates: start: 20040604, end: 20040604

REACTIONS (4)
  - MENINGITIS CHEMICAL [None]
  - OFF LABEL USE [None]
  - POST PROCEDURAL COMPLICATION [None]
  - PYREXIA [None]
